FAERS Safety Report 24544917 (Version 2)
Quarter: 2024Q4

REPORT INFORMATION
  Report Type: Report from Study
  Country: US (occurrence: US)
  Receive Date: 20241024
  Receipt Date: 20241118
  Transmission Date: 20250114
  Serious: No
  Sender: ACADIA PHARMACEUTICALS
  Company Number: US-ACADIA PHARMACEUTICALS INC.-ACA-2024-PIM-006198

PATIENT
  Age: 78 Year
  Sex: Female

DRUGS (20)
  1. NUPLAZID [Suspect]
     Active Substance: PIMAVANSERIN TARTRATE
     Indication: Parkinson^s disease psychosis
     Dosage: 34 MILLIGRAM, QD
     Route: 048
     Dates: start: 20231113
  2. NUPLAZID [Suspect]
     Active Substance: PIMAVANSERIN TARTRATE
     Indication: Psychotic disorder
  3. NUPLAZID [Suspect]
     Active Substance: PIMAVANSERIN TARTRATE
     Indication: Delusion
  4. BUPROPION HYDROCHLORIDE [Concomitant]
     Active Substance: BUPROPION HYDROCHLORIDE
  5. AMANTADINE [Concomitant]
     Active Substance: AMANTADINE
  6. IRON [Concomitant]
     Active Substance: IRON
  7. VITAMIN B12 [Concomitant]
     Active Substance: CYANOCOBALAMIN
  8. AMLODIPINE BESYLATE [Concomitant]
     Active Substance: AMLODIPINE BESYLATE
  9. LIDODERM [Concomitant]
     Active Substance: LIDOCAINE
  10. LACTULOSE [Concomitant]
     Active Substance: LACTULOSE
  11. DOCUSATE SODIUM [Concomitant]
     Active Substance: DOCUSATE SODIUM
  12. FOLIC ACID [Concomitant]
     Active Substance: FOLIC ACID
  13. VITAMIN D3 [Concomitant]
     Active Substance: CHOLECALCIFEROL
  14. XARELTO [Concomitant]
     Active Substance: RIVAROXABAN
  15. ONDANSETRON [Concomitant]
     Active Substance: ONDANSETRON
  16. MODAFINIL [Concomitant]
     Active Substance: MODAFINIL
  17. MIRTAZAPINE [Concomitant]
     Active Substance: MIRTAZAPINE
  18. OMEPRAZOLE [Concomitant]
     Active Substance: OMEPRAZOLE
  19. ALENDRONATE SODIUM [Concomitant]
     Active Substance: ALENDRONATE SODIUM
  20. ACETAMINOPHEN [Concomitant]
     Active Substance: ACETAMINOPHEN

REACTIONS (3)
  - Urinary tract infection [Recovered/Resolved]
  - Mobility decreased [Not Recovered/Not Resolved]
  - Drug ineffective [Not Recovered/Not Resolved]

NARRATIVE: CASE EVENT DATE: 20240525
